FAERS Safety Report 5101122-2 (Version None)
Quarter: 2006Q3

REPORT INFORMATION
  Report Type: 
  Country: None (occurrence: None)
  Receive Date: 20060731
  Receipt Date: 20060410
  Transmission Date: 20061208
  Serious: No
  Sender: FDA-Public Use
  Company Number: 2006PV011854

PATIENT
  Age: 69 Year
  Sex: Female
  Weight: 93.8946 kg

DRUGS (3)
  1. BYETTA [Suspect]
     Indication: DIABETES MELLITUS NON-INSULIN-DEPENDENT
     Dosage: SEE IMAGE
     Route: 058
     Dates: start: 20060301, end: 20060401
  2. BYETTA [Suspect]
     Indication: DIABETES MELLITUS NON-INSULIN-DEPENDENT
     Dosage: SEE IMAGE
     Route: 058
     Dates: start: 20060402, end: 20060406
  3. GLYBURIDE [Concomitant]

REACTIONS (5)
  - BLOOD GLUCOSE DECREASED [None]
  - DECREASED APPETITE [None]
  - NAUSEA [None]
  - VOMITING [None]
  - WEIGHT DECREASED [None]
